FAERS Safety Report 4953455-8 (Version None)
Quarter: 2006Q1

REPORT INFORMATION
  Report Type: 
  Country: None (occurrence: None)
  Receive Date: 20060131
  Receipt Date: 20050308
  Transmission Date: 20060701
  Serious: Yes (Death)
  Sender: FDA-Public Use
  Company Number: 8009128

PATIENT
  Sex: Male

DRUGS (7)
  1. KEPPRA [Suspect]
     Indication: CONVULSION
     Dosage: 250 MG 2/D PO
     Route: 048
     Dates: start: 20050101, end: 20050101
  2. KEPPRA [Suspect]
     Indication: CONVULSION
     Dosage: PO
     Route: 048
     Dates: start: 20050101, end: 20050217
  3. KEPPRA [Suspect]
     Indication: CONVULSION
     Dosage: 750 MG 2/D PO
     Route: 048
     Dates: start: 20050218, end: 20050224
  4. ATENOLOL [Concomitant]
  5. LEVOXYL [Concomitant]
  6. VASOTEC [Concomitant]
  7. LORCET-HD [Concomitant]

REACTIONS (4)
  - COMPLETED SUICIDE [None]
  - COMPLEX PARTIAL SEIZURES [None]
  - HEADACHE [None]
  - INITIAL INSOMNIA [None]
